FAERS Safety Report 25734889 (Version 1)
Quarter: 2025Q3

REPORT INFORMATION
  Report Type: Spontaneous
  Country: EU (occurrence: EU)
  Receive Date: 20250828
  Receipt Date: 20250828
  Transmission Date: 20251021
  Serious: Yes (Other)
  Sender: CHEPLAPHARM
  Company Number: None

PATIENT
  Age: 10 Month
  Sex: Female

DRUGS (6)
  1. CLONAZEPAM [Suspect]
     Active Substance: CLONAZEPAM
     Indication: Epilepsy
     Route: 048
     Dates: start: 202502
  2. MIDAZOLAM HYDROCHLORIDE [Suspect]
     Active Substance: MIDAZOLAM HYDROCHLORIDE
     Indication: Epilepsy
     Route: 048
     Dates: start: 202503
  3. PHENOBARBITAL [Suspect]
     Active Substance: PHENOBARBITAL
     Indication: Epilepsy
     Route: 030
     Dates: start: 202503
  4. VALPROATE SODIUM [Suspect]
     Active Substance: VALPROATE SODIUM
     Indication: Epilepsy
     Dosage: 130 MG MORNING AND EVENING; 200 MG/ML, ORAL SOLUTION ???DAILY DOSE: 260 MILLIGRAM
     Route: 048
     Dates: start: 202503
  5. PHENYTOIN SODIUM [Suspect]
     Active Substance: PHENYTOIN SODIUM
     Indication: Epilepsy
     Dosage: 32 MG (I.E., 5.3 ML) AT 7 A.M., 3 P.M., AND 11 P.M. DOSAGE GRADUALLY INCREASED; 30 MG/5 ML
     Route: 048
     Dates: start: 20250502
  6. TOPIRAMATE [Suspect]
     Active Substance: TOPIRAMATE
     Indication: Epilepsy

REACTIONS (4)
  - Vomiting [Not Recovered/Not Resolved]
  - Neutropenia [Recovered/Resolved]
  - Hypophagia [Unknown]
  - Alkalosis [Recovered/Resolved]

NARRATIVE: CASE EVENT DATE: 20250605
